FAERS Safety Report 10258332 (Version 1)
Quarter: 2014Q2

REPORT INFORMATION
  Report Type: Spontaneous
  Country: US (occurrence: None)
  Receive Date: 20140623
  Receipt Date: 20140623
  Transmission Date: 20141212
  Serious: Yes (Hospitalization)
  Sender: FDA-Public Use
  Company Number: None

PATIENT
  Age: 35 Year
  Sex: Male
  Weight: 117.5 kg

DRUGS (3)
  1. BUPROPION [Suspect]
     Indication: SMOKING CESSATION THERAPY
     Route: 048
     Dates: start: 20140326, end: 20140410
  2. MELOXICAM [Suspect]
     Indication: PAIN
     Dosage: 15 MG, EVERY DAY, PO
     Route: 048
     Dates: start: 20140326, end: 20140410
  3. MELOXICAM [Suspect]
     Indication: ARTHRITIS
     Dosage: 15 MG, EVERY DAY, PO
     Route: 048
     Dates: start: 20140326, end: 20140410

REACTIONS (9)
  - Rash pruritic [None]
  - Rash [None]
  - Peripheral swelling [None]
  - Swelling face [None]
  - Retching [None]
  - Erythema [None]
  - Urticaria [None]
  - Angioedema [None]
  - Rash [None]
